FAERS Safety Report 10210155 (Version 2)
Quarter: 2014Q2

REPORT INFORMATION
  Report Type: Spontaneous
  Country: AU (occurrence: AU)
  Receive Date: 20140602
  Receipt Date: 20140602
  Transmission Date: 20141212
  Serious: Yes (Hospitalization, Other)
  Sender: FDA-Public Use
  Company Number: AU-BAYER-AU-2005-015058

PATIENT
  Age: 46 Year
  Sex: Female

DRUGS (1)
  1. BETAFERON [Suspect]
     Indication: MULTIPLE SCLEROSIS
     Dosage: UNK, 3X/WEEK
     Route: 058

REACTIONS (7)
  - Skin ulcer [Recovered/Resolved]
  - Lichen myxoedematosus [Recovered/Resolved]
  - Skin necrosis [Recovered/Resolved]
  - Thrombosis [None]
  - Rash papular [Recovered/Resolved]
  - Erythema [Recovered/Resolved]
  - Abdominal tenderness [Recovered/Resolved]
